FAERS Safety Report 20482660 (Version 2)
Quarter: 2022Q1

REPORT INFORMATION
  Report Type: Spontaneous
  Country: US (occurrence: None)
  Receive Date: 20220217
  Receipt Date: 20220311
  Transmission Date: 20220423
  Serious: Yes (Death)
  Sender: FDA-Public Use
  Company Number: US-ROCHE-3025621

PATIENT
  Age: 80 Year
  Sex: Female

DRUGS (1)
  1. RITUXAN HYCELA [Suspect]
     Active Substance: HYALURONIDASE (HUMAN RECOMBINANT)\RITUXIMAB
     Indication: Rheumatoid arthritis
     Dosage: DOSE: UNKNOWN
     Route: 058
     Dates: start: 20150806

REACTIONS (2)
  - Idiopathic pulmonary fibrosis [Fatal]
  - Off label use [Unknown]

NARRATIVE: CASE EVENT DATE: 20220124
